FAERS Safety Report 4540942-X (Version None)
Quarter: 2004Q4

REPORT INFORMATION
  Report Type: 
  Country: None (occurrence: None)
  Receive Date: 20041229
  Receipt Date: 20041222
  Transmission Date: 20050328
  Serious: Yes (Hospitalization)
  Sender: FDA-Public Use
  Company Number: FR-GLAXOSMITHKLINE-B0362672A

PATIENT
  Age: 64 Year
  Sex: Male
  Weight: 103 kg

DRUGS (7)
  1. ZOPHREN [Suspect]
     Indication: PROPHYLAXIS
     Route: 042
     Dates: start: 20040622, end: 20040626
  2. SOLU-MEDROL [Suspect]
     Indication: PROPHYLAXIS
     Route: 042
     Dates: start: 20040622, end: 20040626
  3. PRIMPERAN [Suspect]
     Indication: PROPHYLAXIS
     Route: 042
     Dates: start: 20040622, end: 20040626
  4. CISPLATIN [Suspect]
     Indication: LARYNGEAL CANCER
     Dosage: 220MG PER DAY
     Route: 042
     Dates: start: 20040622, end: 20040622
  5. FLUOROURACIL [Suspect]
     Indication: LARYNGEAL CANCER
     Dosage: 2200MG PER DAY
     Route: 042
     Dates: start: 20040622, end: 20040626
  6. MOPRAL [Concomitant]
     Route: 065
     Dates: start: 20040622
  7. STILNOX [Concomitant]
     Route: 065
     Dates: start: 20040622

REACTIONS (5)
  - ARTERIAL THROMBOSIS LIMB [None]
  - INJECTION SITE ERYTHEMA [None]
  - INJECTION SITE THROMBOSIS [None]
  - NEUTROPENIA [None]
  - RENAL FAILURE [None]
